FAERS Safety Report 21123025 (Version 1)
Quarter: 2022Q3

REPORT INFORMATION
  Report Type: Spontaneous
  Country: CO (occurrence: CO)
  Receive Date: 20220724
  Receipt Date: 20220724
  Transmission Date: 20221026
  Serious: Yes (Other)
  Sender: FDA-Public Use
  Company Number: CO-SA-SAC20220721000274

PATIENT
  Age: 28 Year
  Sex: Male
  Weight: 62 kg

DRUGS (1)
  1. DUPILUMAB [Suspect]
     Active Substance: DUPILUMAB
     Indication: Dermatitis atopic
     Dosage: UNK, Q15D
     Route: 058
     Dates: start: 20220124

REACTIONS (9)
  - Systemic inflammatory response syndrome [Recovering/Resolving]
  - Pain [Recovering/Resolving]
  - Tachycardia [Recovering/Resolving]
  - Dehydration [Recovering/Resolving]
  - Tachypnoea [Recovering/Resolving]
  - Chest pain [Recovering/Resolving]
  - Pallor [Recovering/Resolving]
  - Weight decreased [Recovering/Resolving]
  - Arthralgia [Recovering/Resolving]
